FAERS Safety Report 23332973 (Version 2)
Quarter: 2024Q1

REPORT INFORMATION
  Report Type: Spontaneous
  Country: CN (occurrence: CN)
  Receive Date: 20231222
  Receipt Date: 20240104
  Transmission Date: 20240410
  Serious: Yes (Other)
  Sender: FDA-Public Use
  Company Number: CN-SUN PHARMACEUTICAL INDUSTRIES LTD-2023R1-421657

PATIENT
  Age: 19 Year
  Sex: Female
  Weight: 47 kg

DRUGS (7)
  1. OLANZAPINE [Suspect]
     Active Substance: OLANZAPINE
     Indication: Schizophrenia
     Dosage: 5 MILLIGRAM, DAILY AT NIGHT
     Route: 048
  2. OLANZAPINE [Suspect]
     Active Substance: OLANZAPINE
     Dosage: 10 MILLIGRAM, DAILY AT NIGHT
     Route: 048
  3. OLANZAPINE [Suspect]
     Active Substance: OLANZAPINE
     Dosage: 2.5 MILLIGRAM, DAILY AT EVENING
     Route: 048
  4. OLANZAPINE [Suspect]
     Active Substance: OLANZAPINE
     Dosage: 2.5 MILLIGRAM, DAILY AT NIGHT
     Route: 048
  5. AMISULPRIDE [Suspect]
     Active Substance: AMISULPRIDE
     Indication: Schizophrenia
     Dosage: 0.4 GRAM, DAILY
     Route: 065
  6. AMISULPRIDE [Suspect]
     Active Substance: AMISULPRIDE
     Dosage: 1 GRAM, DAILY
     Route: 065
     Dates: start: 20220929
  7. AMISULPRIDE [Suspect]
     Active Substance: AMISULPRIDE
     Dosage: 0.4 GRAM, DAILY
     Route: 065
     Dates: start: 20221012

REACTIONS (2)
  - Hypotension [Recovered/Resolved]
  - Drug level increased [Recovering/Resolving]
